FAERS Safety Report 7000091 (Version 2)
Quarter: 2014Q3

REPORT INFORMATION
  Report Type: Spontaneous
  Country: IT (occurrence: None)
  Receive Date: 20090511
  Receipt Date: 20140724
  Transmission Date: 20150326
  Serious: Yes (Death)
  Sender: FDA-Public Use
  Company Number: 262557

PATIENT
  Age: 65 Year
  Sex: Male

DRUGS (12)
  1. DOXORUBICIN HYDROCHLORIDE. [Suspect]
     Active Substance: DOXORUBICIN HYDROCHLORIDE
     Indication: DIFFUSE LARGE B-CELL LYMPHOMA
  2. VINCRISTINE SULFATE. [Suspect]
     Active Substance: VINCRISTINE SULFATE
     Indication: DIFFUSE LARGE B-CELL LYMPHOMA
  3. NEUPOGEN [Concomitant]
     Active Substance: FILGRASTIM
  4. CYTARABINE. [Suspect]
     Active Substance: CYTARABINE
     Indication: DIFFUSE LARGE B-CELL LYMPHOMA
  5. RITUXIMAB [Suspect]
     Active Substance: RITUXIMAB
     Indication: DIFFUSE LARGE B-CELL LYMPHOMA
  6. DEXAMETHASONE. [Suspect]
     Active Substance: DEXAMETHASONE
     Indication: DIFFUSE LARGE B-CELL LYMPHOMA
  7. PIPERACILLIN SODIUM\TAZOBACTAM SODIUM [Concomitant]
     Active Substance: PIPERACILLIN SODIUM\TAZOBACTAM SODIUM
  8. CISPLATIN. [Suspect]
     Active Substance: CISPLATIN
     Indication: DIFFUSE LARGE B-CELL LYMPHOMA
  9. METHOTREXATE [Suspect]
     Active Substance: METHOTREXATE
     Indication: DIFFUSE LARGE B-CELL LYMPHOMA
     Dosage: INTRATHECAL
     Route: 037
  10. UNSPECIFIED INGREDIENT [Suspect]
     Active Substance: UNSPECIFIED INGREDIENT
     Indication: DIFFUSE LARGE B-CELL LYMPHOMA
     Dosage: 30 GY,
  11. CYCLOPHOSPHAMIDE. [Suspect]
     Active Substance: CYCLOPHOSPHAMIDE
     Indication: DIFFUSE LARGE B-CELL LYMPHOMA
  12. PREDNISONE. [Suspect]
     Active Substance: PREDNISONE
     Indication: DIFFUSE LARGE B-CELL LYMPHOMA

REACTIONS (22)
  - Endocrine disorder [None]
  - Blood lactate dehydrogenase increased [None]
  - Pancreas infection [None]
  - White blood cell count decreased [None]
  - Haemoglobin decreased [None]
  - Thyroxine free decreased [None]
  - Blood sodium decreased [None]
  - Blood osmolarity decreased [None]
  - Lung infection [None]
  - Hypothalamo-pituitary disorder [None]
  - Bone marrow tumour cell infiltration [None]
  - Adrenal disorder [None]
  - Spleen disorder [None]
  - Cytomegalovirus infection [None]
  - Hypotension [None]
  - Lymphadenopathy [None]
  - Platelet count decreased [None]
  - Blood prolactin decreased [None]
  - Liver disorder [None]
  - Diabetes insipidus [None]
  - Blood growth hormone decreased [None]
  - Central nervous system lymphoma [None]
